FAERS Safety Report 16024075 (Version 2)
Quarter: 2019Q2

REPORT INFORMATION
  Report Type: Spontaneous
  Country: US (occurrence: US)
  Receive Date: 20190301
  Receipt Date: 20190423
  Transmission Date: 20190711
  Serious: Yes (Other)
  Sender: FDA-Public Use
  Company Number: US-RIGEL PHARMACEUTICALS, INC.-2019FOS000090

PATIENT

DRUGS (1)
  1. TAVALISSE [Suspect]
     Active Substance: FOSTAMATINIB
     Indication: THROMBOCYTOPENIA
     Dosage: 100 MG, BID
     Route: 048
     Dates: start: 2019, end: 2019

REACTIONS (4)
  - Loss of consciousness [Unknown]
  - Fall [Unknown]
  - Off label use [Unknown]
  - Dizziness [Unknown]

NARRATIVE: CASE EVENT DATE: 2019
